FAERS Safety Report 4774374-6 (Version None)
Quarter: 2005Q3

REPORT INFORMATION
  Report Type: 
  Country: None (occurrence: None)
  Receive Date: 20050914
  Receipt Date: 20050401
  Transmission Date: 20060218
  Serious: Yes (Hospitalization)
  Sender: FDA-Public Use
  Company Number: 163-20785-05040055

PATIENT
  Age: 66 Year
  Sex: Female
  Weight: 58 kg

DRUGS (28)
  1. THALOMID [Suspect]
     Indication: MULTIPLE MYELOMA
     Dosage: QD, ORAL
     Route: 048
     Dates: start: 20041101, end: 20041108
  2. THALOMID [Suspect]
     Indication: MULTIPLE MYELOMA
     Dosage: QD, ORAL
     Route: 048
     Dates: start: 20040701
  3. THALOMID [Suspect]
     Indication: MULTIPLE MYELOMA
     Dosage: QD, ORAL
     Route: 048
     Dates: start: 20040828
  4. THALOMID [Suspect]
     Indication: MULTIPLE MYELOMA
     Dosage: QD, ORAL
     Route: 048
     Dates: start: 20041007
  5. DEXAMETHASONE [Suspect]
     Indication: MULTIPLE MYELOMA
     Dates: start: 20040701
  6. DEXAMETHASONE [Suspect]
     Indication: MULTIPLE MYELOMA
     Dates: start: 20041007
  7. BORTEZOMIB (BORTEZOMIB) [Suspect]
     Indication: MULTIPLE MYELOMA
     Dates: start: 20040828
  8. BORTEZOMIB (BORTEZOMIB) [Suspect]
     Indication: MULTIPLE MYELOMA
     Dates: start: 20041007
  9. CISPLATIN [Suspect]
     Indication: MULTIPLE MYELOMA
     Dates: start: 20040828
  10. CISPLATIN [Suspect]
     Indication: MULTIPLE MYELOMA
     Dates: start: 20041007
  11. ADRIAMYCIN PFS [Suspect]
     Indication: MULTIPLE MYELOMA
     Dates: start: 20040828
  12. ADRIAMYCIN PFS [Suspect]
     Indication: MULTIPLE MYELOMA
     Dates: start: 20041007
  13. CYCLOPHOSPHAMIDE [Suspect]
     Indication: MULTIPLE MYELOMA
     Dates: start: 20040828
  14. CYCLOPHOSPHAMIDE [Suspect]
     Indication: MULTIPLE MYELOMA
     Dates: start: 20041007
  15. ETOPOSIDE [Suspect]
     Indication: MULTIPLE MYELOMA
     Dates: start: 20040828
  16. ETOPOSIDE [Suspect]
     Indication: MULTIPLE MYELOMA
     Dates: start: 20041007
  17. MELPHALAN (MELPHALAN) [Suspect]
     Indication: MULTIPLE MYELOMA
     Dosage: 200 MG/M2, INTRAVENOUS
     Route: 042
     Dates: start: 20041116, end: 20041116
  18. MELPHALAN (MELPHALAN) [Suspect]
     Indication: MULTIPLE MYELOMA
     Dosage: 200 MG/M2, INTRAVENOUS
     Route: 042
     Dates: start: 20050227, end: 20050227
  19. ACYCLOVIR [Concomitant]
  20. FOLIC ACID [Concomitant]
  21. MULTIVITAMIN [Concomitant]
  22. PANTOPRAZOLE SODIUM [Concomitant]
  23. REGLAN [Concomitant]
  24. DOXYCYCLIN (DOXYCYLINE) [Concomitant]
  25. INVANZ (ERTAPENEM SODIUM) [Concomitant]
  26. MAGNESIUM OXIDE (MAGNESIUM OXIDE) [Concomitant]
  27. EPOETIN (EPOETIN ALFA) [Concomitant]
  28. ATIVAN [Concomitant]

REACTIONS (8)
  - DEHYDRATION [None]
  - DIARRHOEA [None]
  - ENTEROCOCCAL INFECTION [None]
  - FEBRILE NEUTROPENIA [None]
  - HYPOTENSION [None]
  - MUCOSAL INFLAMMATION [None]
  - STAPHYLOCOCCAL INFECTION [None]
  - SUPRAVENTRICULAR TACHYCARDIA [None]
